FAERS Safety Report 4921604-3 (Version None)
Quarter: 2006Q1

REPORT INFORMATION
  Report Type: 
  Country: None (occurrence: None)
  Receive Date: 20060224
  Receipt Date: 20030213
  Transmission Date: 20060701
  Serious: Yes (Other)
  Sender: FDA-Public Use
  Company Number: 2006AC00303

PATIENT
  Age: 15 Year
  Sex: Male

DRUGS (4)
  1. PROPOFOL [Suspect]
     Indication: SEDATION
  2. DOPAMINE [Concomitant]
     Indication: CEREBRAL DISORDER
  3. NOREPINEPHRINE [Concomitant]
     Indication: CEREBRAL DISORDER
  4. MANNITOL [Concomitant]
     Indication: CEREBRAL DISORDER

REACTIONS (3)
  - ELECTROCARDIOGRAM ST SEGMENT ELEVATION [None]
  - RENAL FAILURE [None]
  - RHABDOMYOLYSIS [None]
